FAERS Safety Report 4402168-X (Version None)
Quarter: 2004Q3

REPORT INFORMATION
  Report Type: 
  Country: None (occurrence: None)
  Receive Date: 20040714
  Receipt Date: 20040628
  Transmission Date: 20050211
  Serious: Yes (Hospitalization, Other)
  Sender: FDA-Public Use
  Company Number: USA040671224

PATIENT
  Age: 59 Year
  Sex: Male
  Weight: 82 kg

DRUGS (1)
  1. HUMULIN 70/30 [Suspect]
     Indication: DIABETES MELLITUS
     Dosage: 35 U/2 DAY

REACTIONS (3)
  - CEREBROVASCULAR ACCIDENT [None]
  - FALL [None]
  - PHARMACEUTICAL PRODUCT COMPLAINT [None]
